FAERS Safety Report 19928354 (Version 1)
Quarter: 2021Q4

REPORT INFORMATION
  Report Type: Spontaneous
  Country: US (occurrence: US)
  Receive Date: 20211006
  Receipt Date: 20211006
  Transmission Date: 20220303
  Serious: Yes (Other)
  Sender: FDA-Public Use
  Company Number: None

PATIENT
  Age: 70 Year
  Sex: Female

DRUGS (4)
  1. REVLIMID [Suspect]
     Active Substance: LENALIDOMIDE
     Indication: Plasma cell myeloma
     Route: 048
     Dates: start: 20200624, end: 20210721
  2. METOPROLOL 25 [Concomitant]
  3. KLRO CON 20 MEQ [Concomitant]
  4. LOSARTAN [Concomitant]
     Active Substance: LOSARTAN

REACTIONS (3)
  - White blood cell count decreased [None]
  - Platelet count decreased [None]
  - Asthenia [None]

NARRATIVE: CASE EVENT DATE: 20210930
